FAERS Safety Report 5423094-3 (Version None)
Quarter: 2007Q3

REPORT INFORMATION
  Report Type: 
  Country: None (occurrence: None)
  Receive Date: 20070821
  Receipt Date: 20070806
  Transmission Date: 20080115
  Serious: Yes (Hospitalization)
  Sender: FDA-Public Use
  Company Number: 2007001052

PATIENT
  Age: 60 Year
  Sex: Male

DRUGS (3)
  1. ERLOTINIB (TABLET) (ERLOTINIB HCL) [Suspect]
     Indication: NON-SMALL CELL LUNG CANCER
     Dosage: 300 MG (QD), ORAL
     Route: 048
     Dates: start: 20070405
  2. MINOCIN [Suspect]
     Dates: start: 20070424, end: 20070530
  3. ADVIL [Suspect]
     Dates: start: 20070215, end: 20070531

REACTIONS (6)
  - BONE MARROW TOXICITY [None]
  - LYMPHOCYTE COUNT DECREASED [None]
  - MONOCYTE COUNT DECREASED [None]
  - NEUTROPENIA [None]
  - UNEVALUABLE EVENT [None]
  - WHITE BLOOD CELL COUNT DECREASED [None]
